FAERS Safety Report 14589950 (Version 7)
Quarter: 2018Q3

REPORT INFORMATION
  Report Type: Report from Study
  Country: IT (occurrence: IT)
  Receive Date: 20180302
  Receipt Date: 20180724
  Transmission Date: 20181010
  Serious: Yes (Death, Hospitalization)
  Sender: FDA-Public Use
  Company Number: IT-ROCHE-2049219

PATIENT
  Age: 72 Year
  Sex: Male
  Weight: 63 kg

DRUGS (11)
  1. ATEZOLIZUMAB. [Suspect]
     Active Substance: ATEZOLIZUMAB
     Indication: COLORECTAL CANCER METASTATIC
     Dosage: DRUG INTERRUPTED.?ON 14/DEC/2017 AT 12:30, HE RECEIVED THE MOST RECENT DOSE OF ATEZOLIZUMAB 800 MG P
     Route: 042
     Dates: start: 20160616
  2. FOLINIC ACID [Suspect]
     Active Substance: LEUCOVORIN
     Indication: COLORECTAL CANCER METASTATIC
     Dosage: MOST RECENT DOSE ON 14/DEC/2018
     Route: 042
     Dates: start: 20160616
  3. LANTUS [Concomitant]
     Active Substance: INSULIN GLARGINE
     Route: 065
     Dates: start: 20160118
  4. NOVORAPID [Concomitant]
     Active Substance: INSULIN ASPART
     Route: 065
     Dates: start: 20160118
  5. BEVACIZUMAB. [Suspect]
     Active Substance: BEVACIZUMAB
     Indication: COLORECTAL CANCER METASTATIC
     Dosage: ON 14/DEC/2017 AT 13:45, HE RECEIVED THE MOST RECENT DOSE OF BEVACIZUMAB 330 MG PRIOR TO DIARRHEA ON
     Route: 042
     Dates: start: 20160201
  6. 5?FLUOROURACIL [Suspect]
     Active Substance: FLUOROURACIL
     Indication: COLORECTAL CANCER METASTATIC
     Dosage: MOST RECENT DOSE ON 14/DEC/2017?1600?2400 MG/M^2 5?FU VIA 46?HOUR
     Route: 042
     Dates: start: 20160616
  7. CARDIOASPIRIN [Concomitant]
     Active Substance: ASPIRIN
     Route: 065
     Dates: start: 2006
  8. REAPTAN [Concomitant]
     Active Substance: AMLODIPINE BESYLATE\PERINDOPRIL ARGININE
     Route: 065
     Dates: start: 2010
  9. LOPERAMIDE [Concomitant]
     Active Substance: LOPERAMIDE
     Route: 065
     Dates: start: 20160321
  10. DIHYDROCODEINE [Concomitant]
     Active Substance: DIHYDROCODEINE
     Indication: COUGH
     Dosage: DROPS
     Route: 065
     Dates: start: 20160801
  11. LOPERAMIDE [Concomitant]
     Active Substance: LOPERAMIDE
     Indication: DIARRHOEA
     Route: 065
     Dates: start: 20160301, end: 20160317

REACTIONS (1)
  - Hepatorenal failure [Fatal]

NARRATIVE: CASE EVENT DATE: 20180105
